FAERS Safety Report 9194077 (Version 1)
Quarter: 2013Q1

REPORT INFORMATION
  Report Type: Spontaneous
  Country: CA (occurrence: CA)
  Receive Date: 20130327
  Receipt Date: 20130327
  Transmission Date: 20140127
  Serious: Yes (Death)
  Sender: FDA-Public Use
  Company Number: CA-ELI_LILLY_AND_COMPANY-CA201303007164

PATIENT
  Age: 63 Year
  Sex: Male

DRUGS (12)
  1. FORTEO [Suspect]
     Indication: OSTEOPOROSIS
     Dosage: 20 UG, QD
     Route: 058
     Dates: start: 20110211
  2. CALCIUM [Concomitant]
  3. VITAMIN D [Concomitant]
  4. ZYTRAM XL [Concomitant]
  5. APO-K [Concomitant]
  6. PANTOPRAZOLE [Concomitant]
  7. FUROSEMIDE [Concomitant]
  8. FERROUS GLUCONATE [Concomitant]
  9. DULCOLAX [Concomitant]
  10. VITAMIN C [Concomitant]
  11. LACTULOSE [Concomitant]
  12. OXYGEN [Concomitant]

REACTIONS (1)
  - Death [Fatal]
